FAERS Safety Report 24682053 (Version 1)
Quarter: 2024Q4

REPORT INFORMATION
  Report Type: Report from Study
  Country: GB (occurrence: GB)
  Receive Date: 20241130
  Receipt Date: 20241130
  Transmission Date: 20250114
  Serious: Yes (Other)
  Sender: TEVA
  Company Number: GB-TEVA-VS-3268922

PATIENT
  Age: 58 Year
  Sex: Female

DRUGS (1)
  1. AJOVY [Suspect]
     Active Substance: FREMANEZUMAB-VFRM
     Indication: Migraine
     Dosage: STRENGTH: 225MG/1.5ML
     Route: 058

REACTIONS (4)
  - Blindness [Recovered/Resolved]
  - Vomiting [Recovered/Resolved]
  - Product use issue [Unknown]
  - Hypoaesthesia [Recovered/Resolved]
